FAERS Safety Report 6656923-6 (Version None)
Quarter: 2010Q1

REPORT INFORMATION
  Report Type: 
  Country: None (occurrence: None)
  Receive Date: 20100329
  Receipt Date: 20100322
  Transmission Date: 20100710
  Serious: Yes (Hospitalization)
  Sender: FDA-Public Use
  Company Number: US-BRISTOL-MYERS SQUIBB COMPANY-15029093

PATIENT
  Sex: Female

DRUGS (6)
  1. ABATACEPT [Suspect]
  2. ENBREL [Suspect]
  3. PIOGLITAZONE HCL [Concomitant]
  4. ROSUVASTATIN CALCIUM [Concomitant]
  5. LEVOTHYROXINE SODIUM [Concomitant]
  6. STEROIDS [Concomitant]

REACTIONS (1)
  - DERMATITIS BULLOUS [None]
